FAERS Safety Report 9431977 (Version 1)
Quarter: 2013Q3

REPORT INFORMATION
  Report Type: Spontaneous
  Country: FR (occurrence: FR)
  Receive Date: 20130731
  Receipt Date: 20130731
  Transmission Date: 20140515
  Serious: Yes (Death)
  Sender: FDA-Public Use
  Company Number: FR-JNJFOC-20130716468

PATIENT
  Age: 80 Year
  Sex: Male

DRUGS (2)
  1. ZYTIGA [Suspect]
     Indication: PROSTATE CANCER
     Dosage: 4 TABLETS
     Route: 048
  2. CORTICOSTEROIDS [Suspect]
     Indication: PROSTATE CANCER
     Route: 065

REACTIONS (3)
  - Hepatotoxicity [Fatal]
  - Jaundice [Fatal]
  - Alanine aminotransferase increased [Fatal]
